FAERS Safety Report 6306527-X (Version None)
Quarter: 2009Q3

REPORT INFORMATION
  Report Type: 
  Country: None (occurrence: None)
  Receive Date: 20090812
  Receipt Date: 20090731
  Transmission Date: 20100115
  Serious: Yes (Other)
  Sender: FDA-Public Use
  Company Number: JP-WATSON-2009-06196

PATIENT
  Sex: Female

DRUGS (3)
  1. PROMETHAZINE [Suspect]
     Indication: SUICIDAL IDEATION
     Dosage: UNK
     Route: 048
  2. CHLORPROMAZINE HCL [Suspect]
     Indication: SUICIDAL IDEATION
     Dosage: UNK
     Route: 048
  3. PHENOBARBITAL [Suspect]
     Indication: SUICIDAL IDEATION
     Dosage: UNK
     Route: 048

REACTIONS (3)
  - COMA [None]
  - OVERDOSE [None]
  - SUICIDE ATTEMPT [None]
